FAERS Safety Report 7396448-6 (Version None)
Quarter: 2011Q2

REPORT INFORMATION
  Report Type: 
  Country: None (occurrence: None)
  Receive Date: 20110406
  Receipt Date: 20110228
  Transmission Date: 20111010
  Serious: Yes (Other)
  Sender: FDA-Public Use
  Company Number: US-BAYER-201039123NA

PATIENT
  Sex: Female
  Weight: 65 kg

DRUGS (10)
  1. VENTOLIN HFA [Concomitant]
     Indication: ASTHMA
     Dosage: UNK
     Route: 048
     Dates: start: 20080905
  2. UNCODEABLE ^UNCLASSIFIABLE^ [Concomitant]
     Dosage: UNK
     Dates: start: 20090209
  3. UNCODEABLE ^UNCLASSIFIABLE^ [Concomitant]
     Dosage: UNK
     Route: 048
     Dates: start: 20080206
  4. VENTOLIN HFA [Concomitant]
     Route: 055
  5. OXYCODONE [Concomitant]
     Indication: PAIN
     Dosage: 5 MG, PRN
     Route: 048
     Dates: start: 20090120
  6. UNCODEABLE ^UNCLASSIFIABLE^ [Concomitant]
     Indication: PAIN
     Dosage: 5 MG, UNK
     Route: 048
     Dates: start: 20090126
  7. UNCODEABLE ^UNCLASSIFIABLE^ [Concomitant]
     Dosage: UNK
     Dates: start: 20090301, end: 20091201
  8. HYDROMORPHONE HCL [Concomitant]
     Indication: PAIN
     Dosage: 2 MG, UNK
     Route: 048
     Dates: start: 20090202
  9. YAZ [Suspect]
     Indication: CONTRACEPTION
     Dosage: UNK
     Route: 048
     Dates: start: 20080301, end: 20090801
  10. UNCODEABLE ^UNCLASSIFIABLE^ [Concomitant]
     Indication: NAUSEA
     Dosage: UNK
     Route: 048
     Dates: start: 20090202

REACTIONS (5)
  - BILIARY DYSKINESIA [None]
  - SPHINCTER OF ODDI DYSFUNCTION [None]
  - BILIARY TRACT DISORDER [None]
  - PAIN [None]
  - ABDOMINAL PAIN [None]
